FAERS Safety Report 11121040 (Version 1)
Quarter: 2015Q2

REPORT INFORMATION
  Report Type: Spontaneous
  Country: US (occurrence: None)
  Receive Date: 20150515
  Receipt Date: 20150515
  Transmission Date: 20150821
  Serious: Yes (Other)
  Sender: FDA-Public Use
  Company Number: FK201502185

PATIENT
  Age: 50 Year
  Sex: Female

DRUGS (1)
  1. HYDRALAZINE [Suspect]
     Active Substance: HYDRALAZINE HYDROCHLORIDE
     Indication: HYPERTENSION
     Dosage: 50 MG, 3 IN 1 D, ORAL
     Route: 048

REACTIONS (3)
  - Pericarditis [None]
  - Cardiac tamponade [None]
  - Lupus-like syndrome [None]
